FAERS Safety Report 4267155-3 (Version None)
Quarter: 2004Q1

REPORT INFORMATION
  Report Type: 
  Country: None (occurrence: None)
  Receive Date: 20040107
  Receipt Date: 20031215
  Transmission Date: 20041129
  Serious: No
  Sender: FDA-Public Use
  Company Number: A04200300860

PATIENT
  Age: 81 Year
  Sex: Female

DRUGS (1)
  1. ELOXATIN [Suspect]
     Dosage: A FEW HOURS
     Route: 041
     Dates: start: 20031201, end: 20031201

REACTIONS (3)
  - CYANOSIS [None]
  - LARYNGEAL OEDEMA [None]
  - STRIDOR [None]
